FAERS Safety Report 9283838 (Version 3)
Quarter: 2013Q3

REPORT INFORMATION
  Report Type: Spontaneous
  Country: US (occurrence: US)
  Receive Date: 20130510
  Receipt Date: 20130816
  Transmission Date: 20140515
  Serious: Yes (Other)
  Sender: FDA-Public Use
  Company Number: US-GLAXOSMITHKLINE-A1022830A

PATIENT
  Age: 28 Year
  Sex: Female
  Weight: 76.4 kg

DRUGS (4)
  1. BENLYSTA [Suspect]
     Indication: SYSTEMIC LUPUS ERYTHEMATOSUS
     Route: 042
     Dates: start: 2012
  2. RENAGEL [Concomitant]
     Dates: end: 20121215
  3. CELLCEPT [Concomitant]
  4. PREDNISONE [Concomitant]

REACTIONS (5)
  - Foetal death [Unknown]
  - Foetal disorder [Unknown]
  - Ultrasound antenatal screen abnormal [Unknown]
  - Exposure during pregnancy [Unknown]
  - Hydrops foetalis [Unknown]
